FAERS Safety Report 6279277-6 (Version None)
Quarter: 2009Q3

REPORT INFORMATION
  Report Type: 
  Country: None (occurrence: None)
  Receive Date: 20090723
  Receipt Date: 20080613
  Transmission Date: 20100115
  Serious: No
  Sender: FDA-Public Use
  Company Number: US-AMGEN-US287449

PATIENT
  Sex: Female
  Weight: 68.1 kg

DRUGS (6)
  1. PROCRIT [Suspect]
     Indication: ANAEMIA OF MALIGNANT DISEASE
     Route: 058
     Dates: start: 20010101
  2. UNSPECIFIED ANTINEOPLASTIC AGENT [Concomitant]
  3. MORPHINE [Concomitant]
  4. ATIVAN [Concomitant]
     Route: 048
  5. TEMAZEPAM [Concomitant]
     Route: 048
  6. PRILOSEC [Concomitant]
     Route: 048

REACTIONS (3)
  - ANAEMIA [None]
  - MALIGNANT NEOPLASM PROGRESSION [None]
  - WRONG TECHNIQUE IN DRUG USAGE PROCESS [None]
